FAERS Safety Report 8682026 (Version 2)
Quarter: 2012Q4

REPORT INFORMATION
  Report Type: 
  Country: US (occurrence: US)
  Receive Date: 20120725
  Receipt Date: 20121011
  Transmission Date: 20130627
  Serious: Yes (Other)
  Sender: FDA-Public Use
  Company Number: US-MSD-1207USA009197

PATIENT
  Sex: Female

DRUGS (4)
  1. PEGINTRON [Suspect]
     Indication: HEPATITIS C
     Dosage: UNK
     Dates: start: 20120420, end: 20121004
  2. REBETOL [Suspect]
     Indication: HEPATITIS C
     Dosage: 5 a day
     Dates: start: 20120420, end: 20121004
  3. REBETOL [Suspect]
     Dosage: 3 a day
  4. TELAPREVIR [Suspect]
     Indication: HEPATITIS C
     Dosage: UNK
     Dates: start: 20120420, end: 20120712

REACTIONS (2)
  - Haemoglobin decreased [Unknown]
  - Alopecia [Recovering/Resolving]
